FAERS Safety Report 6170028 (Version 7)
Quarter: 2013Q3

REPORT INFORMATION
  Report Type: Spontaneous
  Country: US (occurrence: US)
  Receive Date: 20061117
  Receipt Date: 20130805
  Transmission Date: 20140515
  Serious: Yes (Life-Threatening, Hospitalization, Other)
  Sender: FDA-Public Use
  Company Number: US-ROCHE-470426

PATIENT
  Age: 15 Year
  Sex: Male
  Weight: 102.1 kg

DRUGS (9)
  1. ACCUTANE [Suspect]
     Indication: ACNE
     Route: 065
     Dates: start: 198706, end: 198708
  2. ACCUTANE [Suspect]
     Dosage: 40 MG TWICE DAILY WITH A MAINTANENCE DOSE OF 40 MG EVERY OTHER DAY.
     Route: 065
     Dates: start: 199703, end: 199705
  3. ACCUTANE [Suspect]
     Route: 065
  4. ACCUTANE [Suspect]
     Dosage: FREQUENCY OF ADMINISTRATION WAS REPORTED AS 40 MG IN THE MORNING AND 80 MG AT NIGHT.
     Route: 065
  5. ACCUTANE [Suspect]
     Route: 065
     Dates: start: 19990614, end: 199909
  6. DEPAKOTE [Concomitant]
     Indication: CONVULSION
     Dosage: GENERIC REPORTED AS DIALPROEX SODIUM.
     Route: 065
  7. BACTRIM DS [Concomitant]
     Route: 048
  8. RETIN-A [Concomitant]
     Indication: ACNE
     Dosage: STRENGTH REPORTED AS 0.01.
     Route: 061
  9. CUTIVATE [Concomitant]
     Indication: ECZEMA
     Route: 061

REACTIONS (12)
  - Suicide attempt [Recovered/Resolved]
  - Suicidal ideation [Unknown]
  - Major depression [Recovering/Resolving]
  - Multiple sclerosis [Not Recovered/Not Resolved]
  - Depression [Unknown]
  - Mass [Not Recovered/Not Resolved]
  - Cheilitis [Unknown]
  - Hypertriglyceridaemia [Unknown]
  - Chapped lips [Unknown]
  - Dry eye [Recovering/Resolving]
  - Sunburn [Unknown]
  - Eczema [Unknown]
